FAERS Safety Report 4512926-9 (Version None)
Quarter: 2004Q4

REPORT INFORMATION
  Report Type: 
  Country: None (occurrence: None)
  Receive Date: 20041119
  Receipt Date: 20041119
  Transmission Date: 20050328
  Serious: Yes (Hospitalization)
  Sender: FDA-Public Use
  Company Number: None

PATIENT
  Sex: Male
  Weight: 99.5 kg

DRUGS (11)
  1. CETUXIMAB 250 MG / M2 [Suspect]
     Indication: RECTAL CANCER
     Dosage: 550 MG IV INTRAVENOU
     Route: 042
     Dates: start: 20040823, end: 20041018
  2. XELODA [Suspect]
     Dosage: 2000 MG + 1500 M PO BID ORAL
     Route: 048
     Dates: start: 20040823, end: 20040926
  3. LOMOTIL [Concomitant]
  4. NORVASC [Concomitant]
  5. LOTENSIN [Concomitant]
  6. CLONIDINE [Concomitant]
  7. MAXZIDE [Concomitant]
  8. GLUCOPHAGE [Concomitant]
  9. METOPROLOL [Concomitant]
  10. SIMETHICONE [Concomitant]
  11. VICODIN [Concomitant]

REACTIONS (8)
  - BACK PAIN [None]
  - CHILLS [None]
  - COMPUTERISED TOMOGRAM ABDOMEN ABNORMAL [None]
  - HYDRONEPHROSIS [None]
  - HYDROURETER [None]
  - INCISION SITE ABSCESS [None]
  - POST PROCEDURAL COMPLICATION [None]
  - PYREXIA [None]
